FAERS Safety Report 6686803-1 (Version None)
Quarter: 2010Q2

REPORT INFORMATION
  Report Type: 
  Country: None (occurrence: None)
  Receive Date: 20100419
  Receipt Date: 20100415
  Transmission Date: 20101027
  Serious: Yes (Other)
  Sender: FDA-Public Use
  Company Number: GXKR2010IE02272

PATIENT
  Sex: Female
  Weight: 55 kg

DRUGS (5)
  1. CARBOPLATIN [Suspect]
     Indication: LUNG NEOPLASM MALIGNANT
     Dosage: 500 MG, UNK
     Route: 042
     Dates: start: 20100215
  2. VINORELBINE [Suspect]
     Indication: LUNG NEOPLASM MALIGNANT
     Dosage: 40 MG, UNK
     Route: 042
     Dates: start: 20100215
  3. DOMPERIDONE [Concomitant]
     Route: 065
  4. ZOFRAN [Concomitant]
     Route: 065
  5. DEXAMETHASONE [Concomitant]
     Route: 065

REACTIONS (1)
  - SKIN EXFOLIATION [None]
